FAERS Safety Report 24980473 (Version 1)
Quarter: 2025Q1

REPORT INFORMATION
  Report Type: Spontaneous
  Country: US (occurrence: None)
  Receive Date: 20250214
  Receipt Date: 20250214
  Transmission Date: 20250408
  Serious: Yes (Other)
  Sender: FDA-CTU
  Company Number: None

PATIENT
  Age: 36 Year
  Sex: Female
  Weight: 66.6 kg

DRUGS (3)
  1. PANZYGA [Suspect]
     Active Substance: HUMAN IMMUNOGLOBULIN G
     Indication: Chronic inflammatory demyelinating polyradiculoneuropathy
     Route: 041
  2. Cetirizine 10mg PO premed [Concomitant]
     Dates: start: 20250201, end: 20250201
  3. Naproxen 220mg po premed [Concomitant]
     Dates: start: 20250201, end: 20250201

REACTIONS (7)
  - Sleep disorder [None]
  - Stress [None]
  - Fatigue [None]
  - Dyspnoea [None]
  - Acne [None]
  - Urticaria [None]
  - Infusion related reaction [None]

NARRATIVE: CASE EVENT DATE: 20250201
